FAERS Safety Report 12643321 (Version 1)
Quarter: 2016Q3

REPORT INFORMATION
  Report Type: Spontaneous
  Country: US (occurrence: US)
  Receive Date: 20160811
  Receipt Date: 20160811
  Transmission Date: 20161109
  Serious: No
  Sender: FDA-Public Use
  Company Number: US-009507513-1607USA011172

PATIENT
  Age: 61 Year
  Sex: Male

DRUGS (4)
  1. AMBIEN [Concomitant]
     Active Substance: ZOLPIDEM TARTRATE
  2. UNISOM SLEEPMELTS [Concomitant]
     Active Substance: DIPHENHYDRAMINE HYDROCHLORIDE
  3. REMERON [Suspect]
     Active Substance: MIRTAZAPINE
     Indication: SLEEP DISORDER
     Dosage: , SWITCHING BETWEEN 30 MG AND 45 MG, NOT TAKING EVERYDAYUNK
     Route: 048
     Dates: start: 2016, end: 20160712
  4. PRILOSEC [Concomitant]
     Active Substance: OMEPRAZOLE MAGNESIUM

REACTIONS (3)
  - Inappropriate schedule of drug administration [Unknown]
  - Blood lactate dehydrogenase increased [Recovered/Resolved]
  - Incorrect dose administered [Unknown]

NARRATIVE: CASE EVENT DATE: 201607
